FAERS Safety Report 5083916-5 (Version None)
Quarter: 2006Q3

REPORT INFORMATION
  Report Type: 
  Country: None (occurrence: None)
  Receive Date: 20060727
  Receipt Date: 20060407
  Transmission Date: 20061208
  Serious: Yes (Other)
  Sender: FDA-Public Use
  Company Number: 2006050775

PATIENT
  Age: 70 Year
  Sex: Female
  Weight: 61.2356 kg

DRUGS (6)
  1. LYRICA [Suspect]
     Indication: MIGRAINE
     Dosage: 200 MG (50 MG, 2 IN 1 D), ORAL
     Route: 048
     Dates: start: 20060101
  2. METOPROLOL (METOPROLOL) [Concomitant]
  3. TARKA [Concomitant]
  4. PROZAC [Concomitant]
  5. XANAX [Concomitant]
  6. ACIPHEX [Concomitant]

REACTIONS (1)
  - MIGRAINE [None]
